FAERS Safety Report 11706573 (Version 1)
Quarter: 2015Q4

REPORT INFORMATION
  Report Type: Spontaneous
  Country: US (occurrence: US)
  Receive Date: 20151104
  Receipt Date: 20151104
  Transmission Date: 20160304
  Serious: No
  Sender: FDA-Public Use
  Company Number: US-ELI_LILLY_AND_COMPANY-US201102001684

PATIENT
  Age: 79 Year
  Sex: Female

DRUGS (2)
  1. FORTEO [Suspect]
     Active Substance: TERIPARATIDE
     Indication: OSTEOPOROSIS
     Dosage: 20 UG, DAILY (1/D)
  2. COLACE [Concomitant]
     Active Substance: DOCUSATE SODIUM

REACTIONS (6)
  - Constipation [Not Recovered/Not Resolved]
  - Vitamin D decreased [Unknown]
  - Pain [Unknown]
  - Urticaria [Unknown]
  - Anorectal discomfort [Unknown]
  - Movement disorder [Unknown]

NARRATIVE: CASE EVENT DATE: 201101
